FAERS Safety Report 11365319 (Version 1)
Quarter: 2015Q3

REPORT INFORMATION
  Report Type: Spontaneous
  Country: FR (occurrence: FR)
  Receive Date: 20150811
  Receipt Date: 20150811
  Transmission Date: 20151125
  Serious: Yes (Hospitalization, Other)
  Sender: FDA-Public Use
  Company Number: FR-GLAXOSMITHKLINE-FR2015GSK113868

PATIENT
  Age: 37 Year
  Sex: Female

DRUGS (8)
  1. EPHEDRINE. [Suspect]
     Active Substance: EPHEDRINE
     Indication: PRODUCT USED FOR UNKNOWN INDICATION
     Dosage: 60 MG, UNK
     Route: 042
     Dates: start: 20150619, end: 20150619
  2. BUPIVACAINE [Suspect]
     Active Substance: BUPIVACAINE
     Indication: PRODUCT USED FOR UNKNOWN INDICATION
     Dosage: 10 MG, UNK
     Route: 024
     Dates: start: 20150619, end: 20150619
  3. MORPHINE [Suspect]
     Active Substance: MORPHINE
     Indication: PRODUCT USED FOR UNKNOWN INDICATION
     Dosage: 100 UNK, UNK
     Route: 024
     Dates: start: 20150619, end: 20150619
  4. CEFAZOLINE [Suspect]
     Active Substance: CEFAZOLIN SODIUM
     Indication: PRODUCT USED FOR UNKNOWN INDICATION
     Dosage: UNK
     Route: 042
     Dates: start: 20150619, end: 20150619
  5. ZOPHREN [Suspect]
     Active Substance: ONDANSETRON
     Indication: PRODUCT USED FOR UNKNOWN INDICATION
     Dosage: 4 MG, UNK
     Route: 042
     Dates: start: 20150619, end: 20150619
  6. NEOSYNEPHRINE [Suspect]
     Active Substance: PHENYLEPHRINE HYDROCHLORIDE
     Indication: PRODUCT USED FOR UNKNOWN INDICATION
     Dosage: 250 UNK, UNK
     Route: 042
     Dates: start: 20150619, end: 20150619
  7. SUFENTANIL [Suspect]
     Active Substance: SUFENTANIL
     Indication: PRODUCT USED FOR UNKNOWN INDICATION
     Dosage: 2 UNK, UNK
     Route: 024
     Dates: start: 20150619, end: 20150619
  8. SYNTOCINON [Suspect]
     Active Substance: OXYTOCIN
     Indication: PRODUCT USED FOR UNKNOWN INDICATION
     Dosage: 5 IU, UNK
     Route: 042
     Dates: start: 20150619, end: 20150619

REACTIONS (1)
  - Meningitis aseptic [Recovered/Resolved]

NARRATIVE: CASE EVENT DATE: 20150622
